FAERS Safety Report 24675667 (Version 1)
Quarter: 2024Q4

REPORT INFORMATION
  Report Type: Spontaneous
  Country: BO (occurrence: BO)
  Receive Date: 20241128
  Receipt Date: 20241128
  Transmission Date: 20250114
  Serious: Yes (Death)
  Sender: PFIZER
  Company Number: BO-PFIZER INC-PV202400154067

PATIENT

DRUGS (1)
  1. VFEND [Suspect]
     Active Substance: VORICONAZOLE
     Dosage: CONVENTIONAL LOADING AND MAINTENANCE DOSE
     Route: 042
     Dates: start: 20241122

REACTIONS (1)
  - Death [Fatal]

NARRATIVE: CASE EVENT DATE: 20241123
